FAERS Safety Report 7991275-0 (Version None)
Quarter: 2011Q4

REPORT INFORMATION
  Report Type: 
  Country: None (occurrence: None)
  Receive Date: 20111215
  Receipt Date: 20111129
  Transmission Date: 20120403
  Serious: Yes (Hospitalization, Other)
  Sender: FDA-Public Use
  Company Number: 2011SP057237

PATIENT
  Age: 59 Year
  Sex: Female

DRUGS (10)
  1. DIOVAN (CON.) [Concomitant]
  2. PEG-INTRON [Suspect]
     Indication: PRODUCT USED FOR UNKNOWN INDICATION
  3. NOVOLOG (CON.) [Concomitant]
  4. HUMULIN (CON.) [Concomitant]
  5. BUPROPION (CON.) [Concomitant]
  6. VICTRELIS [Suspect]
     Indication: PRODUCT USED FOR UNKNOWN INDICATION
     Dosage: ;PO
     Route: 048
  7. CITALOPRAM (CON.) [Concomitant]
  8. RIBAVIRIN [Suspect]
     Indication: PRODUCT USED FOR UNKNOWN INDICATION
  9. SEROQUEL (CON.) [Concomitant]
  10. HYDROCHLOROTHIAZIDE (CON.) [Concomitant]

REACTIONS (7)
  - HALLUCINATION [None]
  - NAUSEA [None]
  - BLOOD GLUCOSE ABNORMAL [None]
  - PLATELET COUNT DECREASED [None]
  - DELIRIUM [None]
  - EPISTAXIS [None]
  - DEHYDRATION [None]
